FAERS Safety Report 5708923-8 (Version None)
Quarter: 2008Q2

REPORT INFORMATION
  Report Type: 
  Country: None (occurrence: None)
  Receive Date: 20080416
  Receipt Date: 20080401
  Transmission Date: 20081010
  Serious: No
  Sender: FDA-Public Use
  Company Number: 002#2#2008-00217

PATIENT
  Age: 74 Year
  Sex: Male
  Weight: 94.3482 kg

DRUGS (4)
  1. NEUPRO [Suspect]
     Dosage: 2MG/24H, 1 IN 1 D, TRANSDERMAL; 4MG/24H, 1 IN 1 D, TRANSDERMAL
     Route: 062
     Dates: start: 20071101, end: 20071201
  2. NEUPRO [Suspect]
     Dosage: 2MG/24H, 1 IN 1 D, TRANSDERMAL; 4MG/24H, 1 IN 1 D, TRANSDERMAL
     Route: 062
     Dates: start: 20071201
  3. SINEMET [Concomitant]
  4. RETUXIN [Concomitant]

REACTIONS (1)
  - TREMOR [None]
